FAERS Safety Report 20536239 (Version 1)
Quarter: 2022Q1

REPORT INFORMATION
  Report Type: Spontaneous
  Country: PL (occurrence: PL)
  Receive Date: 20220302
  Receipt Date: 20220302
  Transmission Date: 20220423
  Serious: Yes (Other)
  Sender: FDA-Public Use
  Company Number: PL-AMGEN-POLSP2022036018

PATIENT
  Age: 66 Year
  Sex: Female

DRUGS (5)
  1. PANITUMUMAB [Suspect]
     Active Substance: PANITUMUMAB
     Indication: Rectosigmoid cancer metastatic
     Dosage: UNK
     Route: 065
     Dates: start: 202102
  2. PANITUMUMAB [Suspect]
     Active Substance: PANITUMUMAB
     Dosage: UNK (DOSE DECREASED BY 20%)
     Route: 065
  3. OXALIPLATIN [Concomitant]
     Active Substance: OXALIPLATIN
     Indication: Rectosigmoid cancer metastatic
     Dosage: UNK
     Dates: start: 202102
  4. LEUCOVORIN [Concomitant]
     Active Substance: LEUCOVORIN
     Indication: Rectosigmoid cancer metastatic
     Dosage: UNK
     Dates: start: 202102
  5. FLUOROURACIL [Concomitant]
     Active Substance: FLUOROURACIL
     Indication: Rectosigmoid cancer metastatic
     Dosage: UNK
     Dates: start: 202102

REACTIONS (11)
  - Leukopenia [Unknown]
  - Nail bed inflammation [Unknown]
  - Neutropenia [Unknown]
  - Rectosigmoid cancer metastatic [Unknown]
  - Paronychia [Unknown]
  - Asthenia [Unknown]
  - Hypomagnesaemia [Unknown]
  - Peripheral sensory neuropathy [Unknown]
  - Rash pustular [Unknown]
  - Pruritus [Unknown]
  - Dry skin [Unknown]
